FAERS Safety Report 5673319-4 (Version None)
Quarter: 2008Q1

REPORT INFORMATION
  Report Type: 
  Country: None (occurrence: None)
  Receive Date: 20080317
  Receipt Date: 20080307
  Transmission Date: 20080703
  Serious: Yes (Hospitalization)
  Sender: FDA-Public Use
  Company Number: 2008AL001470

PATIENT
  Age: 72 Year
  Sex: Female

DRUGS (13)
  1. SPIRONOLACTONE [Suspect]
     Indication: CARDIAC FAILURE
     Dosage: 25 MG;QD;PO
     Route: 048
     Dates: start: 20030916, end: 20031101
  2. DIAZEPAM [Suspect]
     Indication: SEDATION
     Dosage: PRN; PO
     Route: 048
     Dates: start: 20030201
  3. ALLOPURINOL [Concomitant]
  4. PENTAERYTHRITOL TETRANITRATE [Concomitant]
  5. DIGIMERCK [Concomitant]
  6. EUTHYROX [Concomitant]
  7. BELOC-ZOK [Concomitant]
  8. XIPAMIDE [Concomitant]
  9. FURORESE [Concomitant]
  10. PANTOZOL [Concomitant]
  11. PHENPROCOUMON [Concomitant]
  12. ZOLPIDEM [Concomitant]
  13. METAMIZOLE SODIUM [Concomitant]

REACTIONS (2)
  - DERMATITIS ALLERGIC [None]
  - STEVENS-JOHNSON SYNDROME [None]
